FAERS Safety Report 5315638-7 (Version None)
Quarter: 2007Q2

REPORT INFORMATION
  Report Type: 
  Country: None (occurrence: None)
  Receive Date: 20070503
  Receipt Date: 20070430
  Transmission Date: 20071010
  Serious: Yes (Death, Other)
  Sender: FDA-Public Use
  Company Number: 2006UW21585

PATIENT
  Age: 40 Year
  Sex: Female
  Weight: 218.2 kg

DRUGS (8)
  1. SEROQUEL [Suspect]
     Indication: ANXIETY
     Route: 048
     Dates: start: 19980101, end: 20040101
  2. SEROQUEL [Suspect]
     Indication: DEPRESSION
     Route: 048
     Dates: start: 19980101, end: 20040101
  3. CLOZARIL [Concomitant]
  4. HALDOL [Concomitant]
  5. RISPERDAL [Concomitant]
  6. STELAZINE [Concomitant]
  7. TRILAFON [Concomitant]
  8. ZYPREXA [Concomitant]

REACTIONS (5)
  - DEATH [None]
  - DIABETES MELLITUS [None]
  - DIABETIC COMA [None]
  - DIABETIC KETOACIDOSIS [None]
  - INJURY [None]
